FAERS Safety Report 6964082-5 (Version None)
Quarter: 2010Q3

REPORT INFORMATION
  Report Type: 
  Country: None (occurrence: None)
  Receive Date: 20100831
  Receipt Date: 20100830
  Transmission Date: 20110219
  Serious: Yes (Hospitalization)
  Sender: FDA-Public Use
  Company Number: TCI2010A03361

PATIENT
  Sex: Female

DRUGS (5)
  1. ACTOS [Suspect]
     Indication: TYPE 2 DIABETES MELLITUS
     Dosage: 15 MG (15 MG, 1 D), PER ORAL
     Route: 048
     Dates: start: 20080724
  2. ALPHA-ADRENOCEPTOR BLOCKING AGENTS [Concomitant]
  3. CALCIUM CHANNEL BLOCKERS [Concomitant]
  4. ANGIOTENSIN II ANTAGONISTS [Concomitant]
  5. ANTITHROMBOTIC AGENTS [Concomitant]

REACTIONS (1)
  - ANGINA PECTORIS [None]
